FAERS Safety Report 22239418 (Version 2)
Quarter: 2023Q2

REPORT INFORMATION
  Report Type: Spontaneous
  Country: DE (occurrence: DE)
  Receive Date: 20230421
  Receipt Date: 20230512
  Transmission Date: 20230722
  Serious: Yes (Other)
  Sender: FDA-Public Use
  Company Number: DE-GLAXOSMITHKLINE-DECH2023016779

PATIENT

DRUGS (1)
  1. DICLOFENAC DIETHYLAMINE [Suspect]
     Active Substance: DICLOFENAC DIETHYLAMINE
     Indication: Back pain
     Dosage: UNK
     Dates: start: 20230410

REACTIONS (9)
  - Prostate cancer metastatic [Unknown]
  - Metastases to bone [Unknown]
  - Neck pain [Unknown]
  - Application site pain [Unknown]
  - Application site vesicles [Unknown]
  - Rash macular [Unknown]
  - Condition aggravated [Unknown]
  - Rash [Unknown]
  - Fatigue [Unknown]

NARRATIVE: CASE EVENT DATE: 20230401
